FAERS Safety Report 9866399 (Version 4)
Quarter: 2015Q2

REPORT INFORMATION
  Report Type: Spontaneous
  Country: FI (occurrence: FI)
  Receive Date: 20140203
  Receipt Date: 20150615
  Transmission Date: 20150821
  Serious: Yes (Hospitalization, Disabling)
  Sender: FDA-Public Use
  Company Number: FI-ROCHE-1339110

PATIENT
  Age: 67 Year
  Sex: Female

DRUGS (3)
  1. RITUXIMAB [Suspect]
     Active Substance: RITUXIMAB
     Indication: RHEUMATOID ARTHRITIS
     Dosage: 2X1000 MG
     Route: 042
     Dates: start: 200708, end: 200708
  2. RITUXIMAB [Suspect]
     Active Substance: RITUXIMAB
     Dosage: 2X1000 MG
     Route: 042
     Dates: start: 201006, end: 201006
  3. RITUXIMAB [Suspect]
     Active Substance: RITUXIMAB
     Dosage: 2X1000 MG
     Route: 042
     Dates: start: 201206, end: 201206

REACTIONS (3)
  - Post procedural infection [Unknown]
  - Tibia fracture [Unknown]
  - Leg amputation [Unknown]

NARRATIVE: CASE EVENT DATE: 2012
